FAERS Safety Report 6045455-4 (Version None)
Quarter: 2009Q1

REPORT INFORMATION
  Report Type: 
  Country: None (occurrence: None)
  Receive Date: 20090121
  Receipt Date: 20090113
  Transmission Date: 20090719
  Serious: Yes (Hospitalization)
  Sender: FDA-Public Use
  Company Number: US-AVENTIS-200910343US

PATIENT
  Sex: Female
  Weight: 108.86 kg

DRUGS (6)
  1. LANTUS [Suspect]
     Dosage: DOSE: UNK
     Route: 058
     Dates: start: 20081112
  2. LISINOPRIL [Concomitant]
     Dosage: DOSE: UNK
  3. HYDROCHLOROTHIAZIDE [Concomitant]
     Dosage: DOSE: UNK
  4. VERAPAMIL [Concomitant]
     Dosage: DOSE: UNK
  5. SIMVASTATIN [Concomitant]
     Dosage: DOSE: UNK
  6. NOVOLIN                            /00030501/ [Concomitant]
     Dosage: DOSE: ON SLIDING SCALE

REACTIONS (2)
  - HYPERGLYCAEMIA [None]
  - LOCALISED INFECTION [None]
